FAERS Safety Report 7659558-1 (Version None)
Quarter: 2011Q3

REPORT INFORMATION
  Report Type: 
  Country: None (occurrence: None)
  Receive Date: 20110805
  Receipt Date: 20110802
  Transmission Date: 20111222
  Serious: Yes (Hospitalization)
  Sender: FDA-Public Use
  Company Number: US-ABBOTT-11P-163-0843518-00

PATIENT
  Sex: Male

DRUGS (3)
  1. OMNICEF [Suspect]
     Dates: start: 20110501, end: 20110501
  2. OMNICEF [Suspect]
     Dates: start: 20110601, end: 20110701
  3. OMNICEF [Suspect]
     Indication: TONSILLITIS
     Dates: start: 20110201

REACTIONS (7)
  - TONSILLITIS [None]
  - COAGULOPATHY [None]
  - DEEP VEIN THROMBOSIS [None]
  - SENSORY DISTURBANCE [None]
  - DRUG INEFFECTIVE [None]
  - EXPIRED DRUG ADMINISTERED [None]
  - PULMONARY EMBOLISM [None]
